FAERS Safety Report 6824613-2 (Version None)
Quarter: 2010Q3

REPORT INFORMATION
  Report Type: 
  Country: None (occurrence: None)
  Receive Date: 20100708
  Receipt Date: 20100629
  Transmission Date: 20110219
  Serious: Yes (Hospitalization)
  Sender: FDA-Public Use
  Company Number: US-AMGEN-KDL413552

PATIENT
  Sex: Female

DRUGS (14)
  1. ENBREL [Suspect]
     Indication: RHEUMATOID ARTHRITIS
     Route: 058
     Dates: start: 20100501
  2. PREDNISONE [Concomitant]
  3. CELEBREX [Concomitant]
  4. LYRICA [Concomitant]
  5. HYZAAR [Concomitant]
  6. AMLODIPINE [Concomitant]
  7. FLOMAX [Concomitant]
  8. METFORMIN HCL [Concomitant]
  9. BONIVA [Concomitant]
  10. OSCAL D [Concomitant]
  11. RANITIDINE [Concomitant]
  12. LORATADINE [Concomitant]
  13. TYLENOL W/ CODEINE NO. 3 [Concomitant]
  14. ASPIRIN [Concomitant]

REACTIONS (9)
  - DIARRHOEA [None]
  - DRUG INEFFECTIVE [None]
  - ESCHERICHIA SEPSIS [None]
  - HEARING IMPAIRED [None]
  - INJECTION SITE HAEMATOMA [None]
  - INJECTION SITE PAIN [None]
  - RHEUMATOID ARTHRITIS [None]
  - UROSEPSIS [None]
  - WALKING AID USER [None]
